FAERS Safety Report 6926304-6 (Version None)
Quarter: 2010Q3

REPORT INFORMATION
  Report Type: 
  Country: None (occurrence: None)
  Receive Date: 20100816
  Receipt Date: 20100608
  Transmission Date: 20110219
  Serious: No
  Sender: FDA-Public Use
  Company Number: US-BAYER-201025023NA

PATIENT
  Age: 22 Year
  Sex: Female

DRUGS (3)
  1. MIRENA [Suspect]
     Indication: PRODUCT USED FOR UNKNOWN INDICATION
     Dosage: FREQUENCY: CONTINUOUS
     Route: 015
     Dates: start: 20071201, end: 20081201
  2. MIRENA [Suspect]
     Dosage: FREQUENCY: CONTINUOUS
     Route: 015
     Dates: start: 20090301
  3. AVELOX [Concomitant]
     Indication: SINUSITIS
     Route: 048
     Dates: start: 20100518, end: 20100608

REACTIONS (2)
  - PAIN [None]
  - PREGNANCY WITH CONTRACEPTIVE DEVICE [None]
